FAERS Safety Report 10148945 (Version 2)
Quarter: 2014Q2

REPORT INFORMATION
  Report Type: Spontaneous
  Country: US (occurrence: US)
  Receive Date: 20140502
  Receipt Date: 20140506
  Transmission Date: 20141212
  Serious: Yes (Other)
  Sender: FDA-Public Use
  Company Number: US-009507513-1405USA000129

PATIENT
  Sex: Female

DRUGS (1)
  1. IMPLANON [Suspect]
     Indication: CONTRACEPTION
     Dosage: 1 SINGLE ROD
     Route: 059

REACTIONS (4)
  - Surgery [Unknown]
  - Weight increased [Unknown]
  - Device deployment issue [Unknown]
  - Device difficult to use [Unknown]
